FAERS Safety Report 14492322 (Version 2)
Quarter: 2018Q1

REPORT INFORMATION
  Report Type: Report from Study
  Country: US (occurrence: US)
  Receive Date: 20180206
  Receipt Date: 20180308
  Transmission Date: 20180509
  Serious: Yes (Other)
  Sender: FDA-Public Use
  Company Number: US-PFIZER INC-2017441936

PATIENT
  Age: 58 Year
  Sex: Female

DRUGS (5)
  1. IBRANCE [Suspect]
     Active Substance: PALBOCICLIB
     Dosage: 75 MG, CYCLIC [DAILY; 3 WEEKS ON/1 WEEK OFF]
     Route: 048
     Dates: start: 20180225
  2. IBRANCE [Suspect]
     Active Substance: PALBOCICLIB
     Dosage: 100 MG, CYCLIC(DAILY, 3 WEEKS ON/1 WEEK OFF)
     Route: 048
     Dates: start: 20180126, end: 20180216
  3. IBRANCE [Suspect]
     Active Substance: PALBOCICLIB
     Indication: BREAST CANCER FEMALE
     Dosage: 125 MG, DAILY
     Route: 048
     Dates: start: 20170910, end: 20171201
  4. IBRANCE [Suspect]
     Active Substance: PALBOCICLIB
     Dosage: 125 MG, CYCLIC (DAILY, 3 WEEKS ON/1 WEEK OFF)
     Route: 048
     Dates: start: 20170910
  5. IBRANCE [Suspect]
     Active Substance: PALBOCICLIB
     Dosage: 125 MG, CYCLIC (DAILY, 3 WEEKS ON/1 WEEK OFF)
     Route: 048
     Dates: start: 20170910, end: 20180119

REACTIONS (7)
  - Alopecia [Unknown]
  - Epistaxis [Unknown]
  - Bone marrow failure [Unknown]
  - Hunger [Unknown]
  - Neutropenia [Unknown]
  - Liver function test abnormal [Unknown]
  - White blood cell count decreased [Unknown]

NARRATIVE: CASE EVENT DATE: 2017
